FAERS Safety Report 21551481 (Version 2)
Quarter: 2022Q4

REPORT INFORMATION
  Report Type: Spontaneous
  Country: US (occurrence: US)
  Receive Date: 20221103
  Receipt Date: 20221123
  Transmission Date: 20230112
  Serious: No
  Sender: FDA-Public Use
  Company Number: US-BAUSCHBL-2022BNL001583

PATIENT
  Age: 83 Year
  Sex: Female
  Weight: 64.014 kg

DRUGS (12)
  1. LOTEMAX SM [Suspect]
     Active Substance: LOTEPREDNOL ETABONATE
     Indication: Transplant rejection
     Route: 047
     Dates: start: 20221013, end: 20221027
  2. REFRESH CLASSIC [Concomitant]
     Active Substance: POLYVINYL ALCOHOL\POVIDONE
     Indication: Product used for unknown indication
  3. DIGOXIN [Concomitant]
     Active Substance: DIGOXIN
     Indication: Product used for unknown indication
  4. PREDNISOLONE [Concomitant]
     Active Substance: PREDNISOLONE
     Indication: Arthritis
  5. WARFARIN [Concomitant]
     Active Substance: WARFARIN
     Indication: Product used for unknown indication
  6. VITAMIN D NOS [Concomitant]
     Active Substance: VITAMIN D NOS
     Indication: Product used for unknown indication
  7. FENOFIBRATE [Concomitant]
     Active Substance: FENOFIBRATE
     Indication: Blood cholesterol
  8. METOPROLOL [Concomitant]
     Active Substance: METOPROLOL
     Indication: Hypertension
  9. OXYBUTYNIN [Concomitant]
     Active Substance: OXYBUTYNIN
     Indication: Product used for unknown indication
  10. VITAMIN B12 [Concomitant]
     Active Substance: CYANOCOBALAMIN
     Indication: Product used for unknown indication
  11. FOLIC ACID [Concomitant]
     Active Substance: FOLIC ACID
     Indication: Product used for unknown indication
  12. METHOTREXATE [Concomitant]
     Active Substance: METHOTREXATE
     Indication: Arthritis

REACTIONS (2)
  - Vision blurred [Not Recovered/Not Resolved]
  - Product use complaint [Unknown]

NARRATIVE: CASE EVENT DATE: 20221001
